FAERS Safety Report 9939764 (Version 1)
Quarter: 2014Q1

REPORT INFORMATION
  Report Type: Report from Study
  Country: US (occurrence: US)
  Receive Date: 20140303
  Receipt Date: 20140303
  Transmission Date: 20141002
  Serious: No
  Sender: FDA-Public Use
  Company Number: US-ABBVIE-13P-163-1033271-00

PATIENT
  Age: 46 Year
  Sex: Female

DRUGS (2)
  1. HUMIRA [Suspect]
     Indication: CROHN^S DISEASE
     Dosage: DAY 1
     Dates: start: 201109, end: 201109
  2. HUMIRA [Suspect]
     Dosage: EVERY FRIDAY

REACTIONS (7)
  - Injection site pain [Unknown]
  - Inappropriate schedule of drug administration [Unknown]
  - Feeling abnormal [Unknown]
  - Feeling hot [Unknown]
  - Paraesthesia [Unknown]
  - Pyrexia [Unknown]
  - Headache [Unknown]
